FAERS Safety Report 26029711 (Version 1)
Quarter: 2025Q4

REPORT INFORMATION
  Report Type: Spontaneous
  Country: US (occurrence: US)
  Receive Date: 20251112
  Receipt Date: 20251112
  Transmission Date: 20260118
  Serious: No
  Sender: ALEXION PHARMACEUTICALS
  Company Number: US-AstraZeneca-CH-00986687A

PATIENT
  Sex: Male

DRUGS (1)
  1. BRILINTA [Suspect]
     Active Substance: TICAGRELOR
     Dosage: UNK
     Route: 065

REACTIONS (5)
  - Dyspnoea [Recovered/Resolved]
  - Contusion [Unknown]
  - Blood urine present [Unknown]
  - Haemorrhage [Unknown]
  - Impaired healing [Unknown]
